FAERS Safety Report 6738437-8 (Version None)
Quarter: 2010Q2

REPORT INFORMATION
  Report Type: 
  Country: None (occurrence: None)
  Receive Date: 20100520
  Receipt Date: 20100510
  Transmission Date: 20101027
  Serious: Yes (Other)
  Sender: FDA-Public Use
  Company Number: 011689

PATIENT
  Sex: Female
  Weight: 150 kg

DRUGS (4)
  1. KEPPRA [Suspect]
     Indication: CONVULSION
     Dosage: 1500 MG ORAL, 1250 MG ORAL
     Route: 048
     Dates: start: 20080901
  2. DEPAKOTE [Concomitant]
  3. SODIUM BICARBONATE [Concomitant]
  4. ANTIHYPERTENSIVES [Concomitant]

REACTIONS (2)
  - CEREBROVASCULAR ACCIDENT [None]
  - DYSPHAGIA [None]
